FAERS Safety Report 5843388-7 (Version None)
Quarter: 2008Q3

REPORT INFORMATION
  Report Type: 
  Country: None (occurrence: None)
  Receive Date: 20080813
  Receipt Date: 20080805
  Transmission Date: 20090109
  Serious: Yes (Congenital Anomaly)
  Sender: FDA-Public Use
  Company Number: A0699515A

PATIENT
  Sex: Female

DRUGS (2)
  1. PAXIL [Suspect]
     Dates: start: 19960101, end: 20030701
  2. VITAMIN AND MINERAL PRENATAL SUPPLEMENT W/ FOLIC ACID CAP [Concomitant]

REACTIONS (9)
  - CONVULSION [None]
  - DRUG EXPOSURE DURING PREGNANCY [None]
  - HYDROCEPHALUS [None]
  - INFECTION [None]
  - KIDNEY INFECTION [None]
  - MULTIPLE CONGENITAL ABNORMALITIES [None]
  - SPINA BIFIDA [None]
  - TRANSPOSITION OF THE GREAT VESSELS [None]
  - VESICOURETERIC REFLUX [None]
